FAERS Safety Report 4984007-1 (Version None)
Quarter: 2006Q1

REPORT INFORMATION
  Report Type: 
  Country: None (occurrence: None)
  Receive Date: 20060301
  Receipt Date: 20051108
  Transmission Date: 20060701
  Serious: No
  Sender: FDA-Public Use
  Company Number: S05-USA-04882-01

PATIENT
  Age: 67 Year
  Sex: Female

DRUGS (4)
  1. NAMENDA [Suspect]
     Indication: AMNESIA
     Dosage: 5 MG QD PO
     Route: 048
     Dates: start: 20051104
  2. ZOLOFT [Concomitant]
  3. XANAX [Concomitant]
  4. CORGARD [Concomitant]

REACTIONS (1)
  - INSOMNIA [None]
